FAERS Safety Report 25544915 (Version 3)
Quarter: 2025Q3

REPORT INFORMATION
  Report Type: Spontaneous
  Country: BR (occurrence: BR)
  Receive Date: 20250711
  Receipt Date: 20250827
  Transmission Date: 20251021
  Serious: Yes (Hospitalization, Other)
  Sender: AZURITY PHARMACEUTICALS
  Company Number: BR-AZURITY PHARMACEUTICALS, INC.-AZR202506-002038

PATIENT
  Age: 10 Year
  Sex: Female
  Weight: 45 kg

DRUGS (1)
  1. TRIPTORELIN [Suspect]
     Active Substance: TRIPTORELIN
     Indication: Delayed puberty
     Route: 030
     Dates: start: 202404, end: 202412

REACTIONS (5)
  - Intracranial pressure increased [Recovering/Resolving]
  - Optic neuritis [Recovered/Resolved with Sequelae]
  - Intracranial pressure increased [Recovering/Resolving]
  - Blindness [Not Recovered/Not Resolved]
  - Product dose omission issue [Unknown]

NARRATIVE: CASE EVENT DATE: 20240401
